FAERS Safety Report 8789321 (Version 1)
Quarter: 2012Q4

REPORT INFORMATION
  Report Type: Spontaneous
  Country: US (occurrence: None)
  Receive Date: 20120905
  Receipt Date: 20120905
  Transmission Date: 20130627
  Serious: Yes (Hospitalization)
  Sender: FDA-Public Use
  Company Number: DKLU1084101

PATIENT
  Sex: Male

DRUGS (2)
  1. SABRIL [Suspect]
     Indication: INFANTILE SPASMS
     Route: 048
     Dates: start: 20091123
  2. SABRIL [Suspect]
     Indication: GRAND MAL CONVULSION
     Route: 048
     Dates: start: 20091123

REACTIONS (1)
  - Cardiac disorder [None]
